FAERS Safety Report 5593049-7 (Version None)
Quarter: 2008Q1

REPORT INFORMATION
  Report Type: 
  Country: None (occurrence: None)
  Receive Date: 20080114
  Receipt Date: 20080108
  Transmission Date: 20080703
  Serious: Yes (Life-Threatening)
  Sender: FDA-Public Use
  Company Number: 2008-170337-NL

PATIENT
  Age: 30 Year
  Sex: Female

DRUGS (1)
  1. ETONOGESTREL [Suspect]
     Indication: CONTRACEPTION
     Dosage: DF SUBCUTANEOUS
     Route: 058
     Dates: start: 20070914

REACTIONS (4)
  - ANXIETY [None]
  - MENTAL DISORDER [None]
  - NERVOUSNESS [None]
  - SUICIDE ATTEMPT [None]
